FAERS Safety Report 6274673-5 (Version None)
Quarter: 2009Q3

REPORT INFORMATION
  Report Type: 
  Country: None (occurrence: None)
  Receive Date: 20090721
  Receipt Date: 20070326
  Transmission Date: 20100115
  Serious: Yes (Hospitalization, Other)
  Sender: FDA-Public Use
  Company Number: US-ASTRAZENECA-2007UW04069

PATIENT
  Age: 15453 Day
  Sex: Female
  Weight: 98.4 kg

DRUGS (27)
  1. SEROQUEL [Suspect]
     Indication: SCHIZOPHRENIA
     Route: 048
     Dates: start: 19980101
  2. SEROQUEL [Suspect]
     Dosage: 300 MG TO 700 MG
     Route: 048
     Dates: start: 19990504, end: 20000224
  3. SEROQUEL [Suspect]
     Route: 048
     Dates: start: 20020911, end: 20030117
  4. SEROQUEL [Suspect]
     Dosage: 75 MG TO 500 MG
     Route: 048
     Dates: start: 20031024
  5. SEROQUEL [Suspect]
     Dosage: 200 MG TO 1000 MG
     Route: 048
     Dates: start: 20050228
  6. ZYPREXA [Suspect]
  7. ZYPREXA [Suspect]
     Dates: start: 20020430, end: 20021112
  8. RISPERDAL [Suspect]
     Route: 048
     Dates: start: 19990417
  9. RISPERDAL [Suspect]
     Dates: start: 20050509, end: 20050919
  10. ABILIFY [Concomitant]
  11. NAVANE [Concomitant]
     Dates: start: 20011205, end: 20011219
  12. STELAZINE [Concomitant]
  13. THORAZINE [Concomitant]
  14. TRILAFON [Concomitant]
  15. OTHER PSYCHIATRIC MEDICATIONS, UNKNOWN NAMES [Concomitant]
  16. HALDOL [Concomitant]
     Dosage: 15 MG TO 45 MG
     Route: 048
     Dates: start: 19990516, end: 20030228
  17. HALDOL [Concomitant]
     Dates: start: 20000425, end: 20050131
  18. GEODON [Concomitant]
     Dates: end: 20031105
  19. TEGRETOL [Concomitant]
     Route: 048
     Dates: start: 19990513
  20. VALIUM [Concomitant]
     Dosage: 2 MG TO 30 MG
     Route: 048
     Dates: start: 19990414
  21. ATIVAN [Concomitant]
     Indication: AKATHISIA
     Dosage: 4.5 MG TO 12 MG
     Route: 048
     Dates: start: 19980129
  22. DIABETA [Concomitant]
     Dosage: 5 MG TO 10 MG
     Route: 048
     Dates: start: 19991206
  23. GLUCOPHAGE [Concomitant]
     Route: 048
     Dates: start: 20010101
  24. CLOZARIL [Concomitant]
     Dosage: 300 MG TO 900 MG
     Route: 048
     Dates: start: 19980129
  25. DEPAKOTE [Concomitant]
     Dosage: 1250 MG TO 1500 MG
     Dates: start: 19990420
  26. TOPAMAX [Concomitant]
     Dosage: 300 MG TO 1500 MG
     Route: 048
     Dates: start: 20000224
  27. ZOLOFT [Concomitant]
     Route: 048
     Dates: start: 20010101

REACTIONS (16)
  - ASTIGMATISM [None]
  - BLOOD CHOLESTEROL INCREASED [None]
  - DEPRESSION [None]
  - DIABETES MELLITUS [None]
  - DIABETES MELLITUS INADEQUATE CONTROL [None]
  - DIABETIC EYE DISEASE [None]
  - DIABETIC NEUROPATHY [None]
  - EYE DISORDER [None]
  - HYPERTENSION [None]
  - NAUSEA [None]
  - PAIN [None]
  - PRURITUS [None]
  - TRIGEMINAL NEURALGIA [None]
  - TRIGGER FINGER [None]
  - TYPE 2 DIABETES MELLITUS [None]
  - URINARY TRACT INFECTION [None]
